FAERS Safety Report 12541802 (Version 1)
Quarter: 2016Q3

REPORT INFORMATION
  Report Type: Spontaneous
  Country: US (occurrence: US)
  Receive Date: 20160708
  Receipt Date: 20160708
  Transmission Date: 20161109
  Serious: No
  Sender: FDA-Public Use
  Company Number: US-OTONOMY INC.-2016OTO00018

PATIENT
  Sex: Male

DRUGS (1)
  1. OTIPRIO [Suspect]
     Active Substance: CIPROFLOXACIN

REACTIONS (1)
  - Ear disorder [Unknown]
